FAERS Safety Report 18270929 (Version 1)
Quarter: 2020Q3

REPORT INFORMATION
  Report Type: Spontaneous
  Country: US (occurrence: US)
  Receive Date: 20200915
  Receipt Date: 20200915
  Transmission Date: 20201103
  Serious: Yes (Other)
  Sender: FDA-Public Use
  Company Number: US-AKRON, INC.-2090768

PATIENT
  Sex: Female

DRUGS (1)
  1. COGENTIN [Suspect]
     Active Substance: BENZTROPINE MESYLATE
     Dates: start: 201710

REACTIONS (2)
  - Gait disturbance [Unknown]
  - Rash [Unknown]
